FAERS Safety Report 17492451 (Version 1)
Quarter: 2020Q1

REPORT INFORMATION
  Report Type: Report from Study
  Country: ID (occurrence: ID)
  Receive Date: 20200304
  Receipt Date: 20200304
  Transmission Date: 20200409
  Serious: Yes (Death, Hospitalization, Other)
  Sender: FDA-Public Use
  Company Number: ID-ASTRAZENECA-2020SE30346

PATIENT
  Sex: Female

DRUGS (2)
  1. FASLODEX [Suspect]
     Active Substance: FULVESTRANT
     Indication: BREAST CANCER METASTATIC
     Route: 030
     Dates: start: 20191029
  2. FASLODEX [Suspect]
     Active Substance: FULVESTRANT
     Indication: PROPHYLAXIS
     Route: 030
     Dates: start: 20191029

REACTIONS (2)
  - Food refusal [Fatal]
  - Pleural effusion [Fatal]
